FAERS Safety Report 10160362 (Version 1)
Quarter: 2014Q2

REPORT INFORMATION
  Report Type: Spontaneous
  Country: IE (occurrence: IE)
  Receive Date: 20140508
  Receipt Date: 20140508
  Transmission Date: 20141212
  Serious: Yes (Hospitalization)
  Sender: FDA-Public Use
  Company Number: IE-B.I. PHARMACEUTICALS,INC./RIDGEFIELD-2014-BI-19759UK

PATIENT
  Sex: Female

DRUGS (2)
  1. GIOTRIF [Suspect]
     Indication: PRODUCT USED FOR UNKNOWN INDICATION
     Dosage: 40 MG
     Route: 065
  2. GIOTRIF [Suspect]
     Dosage: 20 MG
     Route: 065

REACTIONS (1)
  - Adverse event [Unknown]
